FAERS Safety Report 20052968 (Version 1)
Quarter: 2021Q4

REPORT INFORMATION
  Report Type: Spontaneous
  Country: US (occurrence: None)
  Receive Date: 20211110
  Receipt Date: 20211110
  Transmission Date: 20220303
  Serious: No
  Sender: FDA-Public Use
  Company Number: 2021A789127

PATIENT

DRUGS (1)
  1. TAGRISSO [Suspect]
     Active Substance: OSIMERTINIB
     Route: 048
     Dates: start: 202012

REACTIONS (4)
  - Malaise [Unknown]
  - Diarrhoea [Unknown]
  - Alopecia [Unknown]
  - Onychomadesis [Unknown]
